FAERS Safety Report 15463946 (Version 6)
Quarter: 2022Q1

REPORT INFORMATION
  Report Type: Report from Study
  Country: DE (occurrence: None)
  Receive Date: 20181004
  Receipt Date: 20220203
  Transmission Date: 20220423
  Serious: Yes (Hospitalization)
  Sender: FDA-Public Use
  Company Number: DE-ROCHE-2192664

PATIENT
  Age: 44 Year
  Sex: Female
  Weight: 68 kg

DRUGS (12)
  1. ATEZOLIZUMAB [Suspect]
     Active Substance: ATEZOLIZUMAB
     Indication: Ovarian cancer
     Dosage: ON 24/SEP/2018, SHE RECEIVED THE MOST RECENT DOSE BLINDED ATEZOLIZUMAB PRIOR TO FIRST EPISODE OF DET
     Route: 041
     Dates: start: 20180618
  2. BEVACIZUMAB [Suspect]
     Active Substance: BEVACIZUMAB
     Indication: Ovarian cancer
     Dosage: ON 24/SEP/2018, SHE RECEIVED THE MOST RECENT DOSE 945 MG OF BEVACIZUMAB PRIOR TO FIRST EPISODE OF DE
     Route: 042
     Dates: start: 20180808
  3. PACLITAXEL [Suspect]
     Active Substance: PACLITAXEL
     Indication: Ovarian cancer
     Dosage: ON 24/SEP/2018, SHE RECEIVED THE MOST RECENT DOSE 299 MG OF PACLITAXEL PRIOR TO FIRST EPISODE OF DET
     Route: 042
     Dates: start: 20180618
  4. CARBOPLATIN [Suspect]
     Active Substance: CARBOPLATIN
     Indication: Ovarian cancer
     Dosage: DOSE TO ACHIEVE A TARGET AREA UNDER THE CURVE (AUC) OF  6 MG/ML MIN?ON 24/SEP/2018, SHE RECEIVED THE
     Route: 042
     Dates: start: 20180618
  5. SYMBICORT [Concomitant]
     Active Substance: BUDESONIDE\FORMOTEROL FUMARATE DIHYDRATE
     Indication: Asthma
     Route: 055
     Dates: start: 1991
  6. ALLERGOSPASMIN [Concomitant]
     Indication: Asthma
     Route: 055
     Dates: start: 1991
  7. RANITIDINE HYDROCHLORIDE [Concomitant]
     Active Substance: RANITIDINE HYDROCHLORIDE
     Indication: Drug hypersensitivity
     Dates: start: 20180712
  8. DIMETHINDENE [Concomitant]
     Active Substance: DIMETHINDENE
     Indication: Drug hypersensitivity
     Route: 042
     Dates: start: 20180712
  9. MCP AL [Concomitant]
     Indication: Drug hypersensitivity
     Dosage: MCP AL 10MG
     Dates: start: 20180618
  10. IBUPROFENO ABDRUG [Concomitant]
     Indication: Drug hypersensitivity
     Dates: start: 20180618
  11. DEXAMETHASONE [Concomitant]
     Active Substance: DEXAMETHASONE
     Indication: Drug hypersensitivity
     Dosage: DEXAMETHASON CT 4MG
     Route: 048
     Dates: start: 20180618
  12. GRANISETRON ACTAVIS [Concomitant]
     Indication: Drug hypersensitivity
     Dosage: GRANISETRON-ACTAVIS 2MG
     Dates: start: 20180618

REACTIONS (1)
  - General physical health deterioration [Recovered/Resolved]

NARRATIVE: CASE EVENT DATE: 20180927
